FAERS Safety Report 4954770-4 (Version None)
Quarter: 2006Q1

REPORT INFORMATION
  Report Type: 
  Country: None (occurrence: None)
  Receive Date: 20060322
  Receipt Date: 20060303
  Transmission Date: 20060701
  Serious: Yes (Death, Hospitalization, Other)
  Sender: FDA-Public Use
  Company Number: AU200512003982

PATIENT
  Age: 62 Year
  Sex: Female

DRUGS (6)
  1. GEMZAR [Suspect]
     Indication: LUNG CARCINOMA CELL TYPE UNSPECIFIED STAGE III
     Dates: start: 20050901
  2. ALIMTA [Suspect]
     Indication: LUNG CARCINOMA CELL TYPE UNSPECIFIED STAGE III
     Dosage: 400 MG
     Dates: start: 20050928
  3. CARBOPLATIN [Concomitant]
  4. FOLIC ACID [Concomitant]
  5. DEXAMETHASONE [Concomitant]
  6. VITAMIN B12 [Concomitant]

REACTIONS (10)
  - ANAEMIA [None]
  - CONDITION AGGRAVATED [None]
  - DISEASE PROGRESSION [None]
  - INFECTION [None]
  - LUNG NEOPLASM MALIGNANT [None]
  - NEUTROPENIA [None]
  - PLEURAL EFFUSION [None]
  - THERAPEUTIC RESPONSE DECREASED [None]
  - THROMBOCYTOPENIA [None]
  - THROMBOEMBOLIC STROKE [None]
